FAERS Safety Report 4909803-8 (Version None)
Quarter: 2006Q1

REPORT INFORMATION
  Report Type: 
  Country: None (occurrence: None)
  Receive Date: 20060213
  Receipt Date: 20060203
  Transmission Date: 20060701
  Serious: Yes (Hospitalization, Other)
  Sender: FDA-Public Use
  Company Number: JP-JNJFOC-20050507451

PATIENT
  Sex: Female
  Weight: 62 kg

DRUGS (14)
  1. REMICADE [Suspect]
     Route: 042
  2. REMICADE [Suspect]
     Indication: RHEUMATOID ARTHRITIS
     Route: 042
  3. RHEUMATREX [Suspect]
     Route: 048
  4. RHEUMATREX [Suspect]
     Route: 048
  5. RHEUMATREX [Suspect]
     Route: 048
  6. RHEUMATREX [Suspect]
     Route: 048
  7. RHEUMATREX [Suspect]
     Indication: RHEUMATOID ARTHRITIS
     Route: 048
  8. PREDNISOLONE [Suspect]
     Indication: RHEUMATOID ARTHRITIS
     Route: 048
  9. ADRENAL HORMONE PREPARTIONS [Concomitant]
     Indication: RHEUMATOID ARTHRITIS
  10. ISONIAZID [Concomitant]
     Route: 048
  11. ISONIAZID [Concomitant]
     Indication: ANTIBIOTIC PROPHYLAXIS
     Route: 048
  12. FOLIAMIN [Concomitant]
     Route: 048
  13. LOXONIN [Concomitant]
     Indication: RHEUMATOID ARTHRITIS
     Dosage: 2 TABLETS DAILY
     Route: 048
  14. LASIX [Concomitant]
     Route: 048

REACTIONS (4)
  - ALANINE AMINOTRANSFERASE INCREASED [None]
  - ASPARTATE AMINOTRANSFERASE INCREASED [None]
  - HEPATIC ENZYME INCREASED [None]
  - PNEUMOCYSTIS JIROVECI PNEUMONIA [None]
